FAERS Safety Report 23206324 (Version 3)
Quarter: 2025Q3

REPORT INFORMATION
  Report Type: Spontaneous
  Country: EU (occurrence: EU)
  Receive Date: 20231120
  Receipt Date: 20250730
  Transmission Date: 20251021
  Serious: Yes (Life-Threatening, Hospitalization, Other)
  Sender: NOVARTIS
  Company Number: EU-ADIENNEP-2023AD000559

PATIENT
  Sex: Male

DRUGS (9)
  1. MYCOPHENOLATE MOFETIL [Suspect]
     Active Substance: MYCOPHENOLATE MOFETIL
     Indication: Prophylaxis against graft versus host disease
     Dosage: 1000 MG TWICE PER DAY
     Route: 065
     Dates: end: 20210604
  2. CYCLOSPORINE [Suspect]
     Active Substance: CYCLOSPORINE
     Indication: Prophylaxis against graft versus host disease
     Dosage: 3 MG/KG, QD
     Route: 065
     Dates: end: 20210816
  3. ETOPOSIDE [Suspect]
     Active Substance: ETOPOSIDE
     Indication: Chemotherapy
     Route: 042
     Dates: start: 2020, end: 2020
  4. BUSULFAN [Suspect]
     Active Substance: BUSULFAN
     Indication: Allogenic stem cell transplantation
     Route: 065
     Dates: start: 2020, end: 2020
  5. CYCLOPHOSPHAMIDE [Suspect]
     Active Substance: CYCLOPHOSPHAMIDE
     Indication: Chemotherapy
     Route: 065
     Dates: start: 2020, end: 2020
  6. FLUDARABINE PHOSPHATE [Suspect]
     Active Substance: FLUDARABINE PHOSPHATE
     Indication: Allogenic stem cell transplantation
     Route: 042
     Dates: start: 2020, end: 2020
  7. THYMOGLOBULINE [Suspect]
     Active Substance: LAPINE T-LYMPHOCYTE IMMUNE GLOBULIN
     Indication: Allogenic stem cell transplantation
     Route: 065
     Dates: start: 2020, end: 2020
  8. THIOTEPA [Suspect]
     Active Substance: THIOTEPA
     Indication: Chemotherapy
     Route: 065
     Dates: start: 2020, end: 2020
  9. THYMOCYTE IMMUNE GLOBULIN NOS [Suspect]
     Active Substance: THYMOCYTE IMMUNE GLOBULIN NOS
     Indication: Prophylaxis against graft versus host disease
     Route: 065
     Dates: start: 2020

REACTIONS (7)
  - Rectal haemorrhage [Unknown]
  - Shock haemorrhagic [Unknown]
  - Epstein-Barr virus infection reactivation [Unknown]
  - Acute graft versus host disease in intestine [Recovered/Resolved]
  - Venoocclusive liver disease [Recovered/Resolved]
  - Acute graft versus host disease in skin [Recovered/Resolved]
  - Blood bilirubin increased [Recovered/Resolved]
